FAERS Safety Report 7311028-6 (Version None)
Quarter: 2011Q1

REPORT INFORMATION
  Report Type: 
  Country: None (occurrence: None)
  Receive Date: 20110224
  Receipt Date: 20110215
  Transmission Date: 20110831
  Serious: Yes (Other)
  Sender: FDA-Public Use
  Company Number: US-ROCHE-734347

PATIENT
  Sex: Female
  Weight: 99.8 kg

DRUGS (2)
  1. ACCUTANE [Suspect]
     Indication: ACNE
     Route: 065
     Dates: start: 19950101, end: 19960101
  2. ACCUTANE [Suspect]
     Route: 065
     Dates: start: 20080801, end: 20090401

REACTIONS (7)
  - INTESTINAL OBSTRUCTION [None]
  - NAUSEA [None]
  - DEPRESSION [None]
  - ABDOMINAL PAIN [None]
  - COLITIS ULCERATIVE [None]
  - INFLAMMATORY BOWEL DISEASE [None]
  - RECTAL HAEMORRHAGE [None]
